FAERS Safety Report 7658549-4 (Version None)
Quarter: 2011Q3

REPORT INFORMATION
  Report Type: 
  Country: None (occurrence: None)
  Receive Date: 20110805
  Receipt Date: 20110802
  Transmission Date: 20111222
  Serious: Yes (Death, Hospitalization)
  Sender: FDA-Public Use
  Company Number: CA-SANOFI-AVENTIS-2011SA023177

PATIENT
  Age: 64 Year
  Sex: Male

DRUGS (7)
  1. FLUOROURACIL [Concomitant]
     Dosage: ON DAY 15
     Route: 065
  2. IRINOTECAN HCL [Concomitant]
     Dosage: ON DAY 15
     Route: 065
  3. IRINOTECAN HCL [Concomitant]
     Route: 065
     Dates: start: 20110307, end: 20110307
  4. ELOXATIN [Suspect]
     Dosage: ON DAY 15
     Route: 042
  5. ELOXATIN [Suspect]
     Route: 042
     Dates: start: 20110307, end: 20110307
  6. FLUOROURACIL [Concomitant]
     Route: 065
     Dates: start: 20110307, end: 20110307
  7. LEUCOVORIN CALCIUM [Concomitant]
     Route: 065

REACTIONS (6)
  - DIARRHOEA [None]
  - GASTROINTESTINAL HAEMORRHAGE [None]
  - THROMBOCYTOPENIA [None]
  - PANCYTOPENIA [None]
  - FEBRILE NEUTROPENIA [None]
  - SEPSIS [None]
